FAERS Safety Report 21286344 (Version 2)
Quarter: 2022Q3

REPORT INFORMATION
  Report Type: Report from Study
  Country: FR (occurrence: FR)
  Receive Date: 20220902
  Receipt Date: 20220918
  Transmission Date: 20221026
  Serious: Yes (Hospitalization, Other)
  Sender: FDA-Public Use
  Company Number: FR-BRISTOL-MYERS SQUIBB COMPANY-2022-095317

PATIENT
  Age: 80 Year
  Sex: Female

DRUGS (9)
  1. POMALIDOMIDE [Suspect]
     Active Substance: POMALIDOMIDE
     Indication: Plasma cell myeloma
     Dosage: CYCLE NO 1 EQUAL TO OR GREATER THAN 22
     Route: 048
     Dates: start: 20210104, end: 20220819
  2. POMALIDOMIDE [Suspect]
     Active Substance: POMALIDOMIDE
     Dosage: CYCLE 15
     Route: 048
     Dates: start: 20211214
  3. POMALIDOMIDE [Suspect]
     Active Substance: POMALIDOMIDE
     Dosage: INDUCTION PHASE : CYCLE 22
     Route: 048
     Dates: start: 20220805, end: 20220819
  4. IXAZOMIB [Suspect]
     Active Substance: IXAZOMIB
     Indication: Plasma cell myeloma
     Dosage: CYCLE NO 1 EQUAL TO OR GREATER THAN 22
     Route: 048
     Dates: start: 20210104, end: 20220819
  5. IXAZOMIB [Suspect]
     Active Substance: IXAZOMIB
     Dosage: CYCLE N:15
     Route: 048
     Dates: start: 20211214
  6. IXAZOMIB [Suspect]
     Active Substance: IXAZOMIB
     Dosage: INDUCTION PHASE : CYCLE 22
     Route: 048
     Dates: start: 20220805, end: 20220819
  7. DEXAMETHASONE [Concomitant]
     Active Substance: DEXAMETHASONE
     Indication: Plasma cell myeloma
     Dosage: CYCLE 1
     Route: 048
     Dates: start: 20210104
  8. DEXAMETHASONE [Concomitant]
     Active Substance: DEXAMETHASONE
     Dosage: CYCLE 15
     Route: 048
     Dates: start: 20211214
  9. DEXAMETHASONE [Concomitant]
     Active Substance: DEXAMETHASONE
     Dosage: INDUCTION PHASE : CYCLE 22
     Route: 065

REACTIONS (1)
  - Febrile bone marrow aplasia [Recovered/Resolved]

NARRATIVE: CASE EVENT DATE: 20220822
